FAERS Safety Report 19820044 (Version 3)
Quarter: 2021Q4

REPORT INFORMATION
  Report Type: Spontaneous
  Country: JP (occurrence: JP)
  Receive Date: 20210913
  Receipt Date: 20211208
  Transmission Date: 20220303
  Serious: Yes (Death, Life-Threatening, Hospitalization, Other)
  Sender: FDA-Public Use
  Company Number: JP-BRISTOL-MYERS SQUIBB COMPANY-BMS-2021-090400

PATIENT
  Age: 86 Year
  Sex: Male

DRUGS (10)
  1. ELIQUIS [Suspect]
     Active Substance: APIXABAN
     Indication: Cerebrovascular accident prophylaxis
     Dosage: 5 MILLIGRAM
     Route: 048
     Dates: start: 20200519
  2. ELIQUIS [Suspect]
     Active Substance: APIXABAN
     Dosage: 2.5 MILLIGRAM
     Route: 048
     Dates: end: 20210612
  3. COMIRNATY [Suspect]
     Active Substance: TOZINAMERAN
     Indication: COVID-19 immunisation
     Dosage: UNK
     Route: 030
     Dates: start: 20210608
  4. VONOPRAZAN FUMARATE [Concomitant]
     Active Substance: VONOPRAZAN FUMARATE
     Indication: Gastric ulcer
     Dosage: UNK
     Route: 048
     Dates: start: 20180125, end: 20210610
  5. BISOPROLOL FUMARATE [Concomitant]
     Active Substance: BISOPROLOL FUMARATE
     Indication: Cardiac failure congestive
     Dosage: UNK
     Route: 048
     Dates: start: 20161213, end: 20210612
  6. URSO [Concomitant]
     Active Substance: URSODIOL
     Indication: Cholelithiasis
     Dosage: UNK
     Route: 048
     Dates: start: 20191219, end: 20210612
  7. SAMSCA [Concomitant]
     Active Substance: TOLVAPTAN
     Indication: Cardiac failure congestive
     Dosage: UNK
     Route: 048
     Dates: start: 20200421, end: 20210612
  8. ENTRESTO [Concomitant]
     Active Substance: SACUBITRIL\VALSARTAN
     Indication: Cardiac failure congestive
     Dosage: UNK
     Route: 048
     Dates: start: 20201225, end: 20210612
  9. SENNOSIDES A AND B [Concomitant]
     Active Substance: SENNOSIDES A AND B
     Indication: Constipation
     Dosage: UNK
     Route: 048
     Dates: start: 20201112, end: 20210609
  10. MAGNESIUM OXIDE [Concomitant]
     Active Substance: MAGNESIUM OXIDE
     Indication: Constipation
     Dosage: UNK
     Route: 048
     Dates: start: 20191219, end: 20210610

REACTIONS (3)
  - Cardiac failure congestive [Fatal]
  - Rectal haemorrhage [Recovered/Resolved]
  - Hyperuricaemia [Unknown]

NARRATIVE: CASE EVENT DATE: 20200614
